FAERS Safety Report 10005727 (Version 2)
Quarter: 2014Q2

REPORT INFORMATION
  Report Type: Spontaneous
  Country: US (occurrence: US)
  Receive Date: 20140313
  Receipt Date: 20140421
  Transmission Date: 20141212
  Serious: No
  Sender: FDA-Public Use
  Company Number: US-BIOGENIDEC-2014BI021346

PATIENT
  Sex: Female
  Weight: 113 kg

DRUGS (7)
  1. TECFIDERA [Suspect]
     Indication: MULTIPLE SCLEROSIS
     Route: 048
  2. TECFIDERA [Suspect]
     Indication: MULTIPLE SCLEROSIS
     Route: 048
  3. TECFIDERA [Suspect]
     Indication: MULTIPLE SCLEROSIS
     Route: 048
     Dates: start: 201402, end: 201403
  4. TECFIDERA [Suspect]
     Indication: MULTIPLE SCLEROSIS
     Dates: start: 201404
  5. TECFIDERA [Suspect]
     Indication: MULTIPLE SCLEROSIS
  6. TECFIDERA [Suspect]
     Indication: MULTIPLE SCLEROSIS
  7. TECFIDERA [Suspect]
     Indication: MULTIPLE SCLEROSIS

REACTIONS (10)
  - Depression [Unknown]
  - Decreased interest [Unknown]
  - Prescribed underdose [Unknown]
  - Depressed mood [Unknown]
  - Feeling of despair [Unknown]
  - Flushing [Unknown]
  - Abdominal pain upper [Unknown]
  - Nausea [Unknown]
  - Multiple sclerosis relapse [Unknown]
  - Hot flush [Unknown]
